FAERS Safety Report 16675819 (Version 1)
Quarter: 2019Q3

REPORT INFORMATION
  Report Type: Spontaneous
  Country: US (occurrence: US)
  Receive Date: 20190621
  Receipt Date: 20190621
  Transmission Date: 20191004
  Serious: Yes (Hospitalization)
  Sender: FDA-Public Use
  Company Number: None

PATIENT
  Age: 63 Year
  Sex: Male

DRUGS (2)
  1. TACROLIMUS 0.5 MG [Suspect]
     Active Substance: TACROLIMUS
     Indication: TRANSPLANT
  2. MYCOPHENOLATE 500 MG [Suspect]
     Active Substance: MYCOPHENOLATE MOFETIL
     Indication: TRANSPLANT
     Route: 048
     Dates: start: 20151201

REACTIONS (2)
  - Urinary tract infection [None]
  - Dehydration [None]
